FAERS Safety Report 7471739-9 (Version None)
Quarter: 2011Q2

REPORT INFORMATION
  Report Type: 
  Country: None (occurrence: None)
  Receive Date: 20110511
  Receipt Date: 20100316
  Transmission Date: 20111010
  Serious: No
  Sender: FDA-Public Use
  Company Number: A0850460A

PATIENT
  Age: 49 Year
  Sex: Female

DRUGS (15)
  1. COUMADIN [Concomitant]
  2. MAGNESIUM [Concomitant]
  3. FENTANYL [Concomitant]
  4. PREVACID [Concomitant]
  5. OMEPRAZOLE [Concomitant]
  6. TARKA [Concomitant]
  7. LORTAB [Concomitant]
  8. SEROQUEL [Concomitant]
  9. BUMEX [Concomitant]
  10. POTASSIUM [Concomitant]
  11. ZAROXOLYN [Concomitant]
  12. TYKERB [Suspect]
     Indication: BREAST CANCER
     Dosage: 5TAB PER DAY
     Route: 048
     Dates: start: 20100309
  13. ALLEGRA [Concomitant]
  14. DIABETA [Concomitant]
  15. FOLIC ACID [Concomitant]

REACTIONS (8)
  - EAR PAIN [None]
  - HEADACHE [None]
  - DRY MOUTH [None]
  - HAIR GROWTH ABNORMAL [None]
  - INCREASED APPETITE [None]
  - ENERGY INCREASED [None]
  - DIARRHOEA [None]
  - GLOSSODYNIA [None]
